FAERS Safety Report 5393847-9 (Version None)
Quarter: 2007Q3

REPORT INFORMATION
  Report Type: 
  Country: None (occurrence: None)
  Receive Date: 20070723
  Receipt Date: 20070716
  Transmission Date: 20080115
  Serious: Yes (Life-Threatening, Hospitalization, Other)
  Sender: FDA-Public Use
  Company Number: A0659693A

PATIENT
  Age: 45 Year
  Sex: Male
  Weight: 80 kg

DRUGS (8)
  1. AVANDIA [Suspect]
     Dosage: 4MG VARIABLE DOSE
     Route: 048
     Dates: start: 20051028, end: 20070617
  2. FISH OIL [Concomitant]
  3. LOPRESSOR [Concomitant]
     Route: 048
  4. NEURONTIN [Concomitant]
     Indication: MIGRAINE PROPHYLAXIS
     Dosage: 600MG TWICE PER DAY
     Route: 048
  5. NEXIUM [Concomitant]
     Dosage: 40MG PER DAY
     Route: 048
  6. ZESTRIL [Concomitant]
     Dosage: 10MG PER DAY
     Route: 048
  7. ZOCOR [Concomitant]
     Dosage: 80MG AT NIGHT
     Route: 048
  8. PRILOSEC [Concomitant]

REACTIONS (2)
  - CHEST PAIN [None]
  - MYOCARDIAL INFARCTION [None]
